FAERS Safety Report 24173657 (Version 2)
Quarter: 2024Q3

REPORT INFORMATION
  Report Type: Spontaneous
  Country: FR (occurrence: None)
  Receive Date: 20240805
  Receipt Date: 20240806
  Transmission Date: 20241017
  Serious: Yes (Hospitalization)
  Sender: ASTRAZENECA
  Company Number: 2024A176405

PATIENT
  Age: 42 Year
  Sex: Male
  Weight: 110 kg

DRUGS (6)
  1. OMEPRAZOLE [Suspect]
     Active Substance: OMEPRAZOLE
     Indication: Intervertebral disc protrusion
     Dates: start: 20240630
  2. PRISTINAMYCIN [Suspect]
     Active Substance: PRISTINAMYCIN
     Indication: Subcutaneous abscess
     Dates: start: 20240630
  3. KETOPROFEN [Suspect]
     Active Substance: KETOPROFEN
     Indication: Intervertebral disc protrusion
     Dates: start: 20240630
  4. CODEINE [Suspect]
     Active Substance: CODEINE
     Indication: Intervertebral disc protrusion
     Dates: start: 20240630
  5. ACETAMINOPHEN [Suspect]
     Active Substance: ACETAMINOPHEN
     Indication: Intervertebral disc protrusion
     Dates: start: 20240630
  6. DIAZEPAM [Concomitant]
     Active Substance: DIAZEPAM

REACTIONS (3)
  - Pancreatitis acute [Not Recovered/Not Resolved]
  - Hepatitis acute [Not Recovered/Not Resolved]
  - Off label use [Unknown]

NARRATIVE: CASE EVENT DATE: 20240702
